FAERS Safety Report 9288008 (Version 1)
Quarter: 2013Q2

REPORT INFORMATION
  Report Type: Spontaneous
  Country: US (occurrence: None)
  Receive Date: 20130513
  Receipt Date: 20130513
  Transmission Date: 20140414
  Serious: No
  Sender: FDA-Public Use
  Company Number: None

PATIENT
  Age: 22 Year
  Sex: Male
  Weight: 78.02 kg

DRUGS (5)
  1. KEPPRA [Suspect]
     Indication: CONVULSION
     Dosage: 500 MG 3 TABLETS BREAKFAST + BEDTIME PO
     Dates: start: 20080603
  2. DAPAKOTE ER [Concomitant]
  3. FELBUTAM [Concomitant]
  4. DIASTAT SUPPOSITORY [Concomitant]
  5. KLONOPIN [Concomitant]

REACTIONS (2)
  - Epilepsy [None]
  - Grand mal convulsion [None]
